FAERS Safety Report 9767276 (Version 1)
Quarter: 2013Q4

REPORT INFORMATION
  Report Type: Spontaneous
  Country: TR (occurrence: TR)
  Receive Date: 20131217
  Receipt Date: 20131217
  Transmission Date: 20140711
  Serious: Yes (Other)
  Sender: FDA-Public Use
  Company Number: TR-UCBSA-105705

PATIENT
  Sex: Male
  Weight: 3.3 kg

DRUGS (1)
  1. KEPPRA [Suspect]
     Indication: EPILEPSY
     Dosage: 500MG/5ML, DOSE:10MG/KG
     Route: 042

REACTIONS (1)
  - Anaphylactic shock [Recovered/Resolved]
